FAERS Safety Report 6267178-9 (Version None)
Quarter: 2009Q3

REPORT INFORMATION
  Report Type: 
  Country: None (occurrence: None)
  Receive Date: 20090714
  Receipt Date: 20090708
  Transmission Date: 20100115
  Serious: No
  Sender: FDA-Public Use
  Company Number: US-JNJFOC-20090703468

PATIENT
  Sex: Female
  Weight: 70.31 kg

DRUGS (13)
  1. DURAGESIC-100 [Suspect]
     Route: 062
  2. DURAGESIC-100 [Suspect]
     Route: 062
  3. DURAGESIC-100 [Suspect]
     Route: 062
  4. DURAGESIC-100 [Suspect]
     Route: 062
  5. DURAGESIC-100 [Suspect]
     Route: 062
  6. DURAGESIC-100 [Suspect]
     Indication: ARTHRALGIA
     Route: 062
  7. OXYCODONE [Concomitant]
     Indication: PAIN
     Route: 048
  8. XANAX [Concomitant]
     Indication: NERVOUS SYSTEM DISORDER
     Route: 048
  9. PHENERGAN [Concomitant]
     Indication: NAUSEA
     Route: 048
  10. CLARITIN [Concomitant]
     Indication: ASTHMA
     Route: 048
  11. VENTOLIN [Concomitant]
     Indication: ASTHMA
     Dosage: 2 PUFFS PER DAY
     Route: 048
  12. ADVAIR HFA [Concomitant]
     Indication: ASTHMA
     Dosage: 3 PUFFS PER DAY
     Route: 048
  13. ALL OTHER THERAPEUTICS [Concomitant]
     Indication: HEPATITIS C

REACTIONS (8)
  - ABDOMINAL PAIN [None]
  - DRUG DOSE OMISSION [None]
  - DRUG EFFECT INCREASED [None]
  - DYSKINESIA [None]
  - FATIGUE [None]
  - FEELING ABNORMAL [None]
  - MALAISE [None]
  - WITHDRAWAL SYNDROME [None]
